FAERS Safety Report 7070481-6 (Version None)
Quarter: 2010Q4

REPORT INFORMATION
  Report Type: 
  Country: None (occurrence: None)
  Receive Date: 20101028
  Receipt Date: 20101028
  Transmission Date: 20110411
  Serious: Yes (Congenital Anomaly)
  Sender: FDA-Public Use
  Company Number: None

PATIENT
  Age: 48 Year
  Sex: Female
  Weight: 99.7913 kg

DRUGS (1)
  1. EVAMIST [Suspect]
     Indication: HORMONE REPLACEMENT THERAPY
     Dosage: 3 SPRAYS ONCE DAILY TOP
     Route: 061
     Dates: start: 20080101, end: 20100101

REACTIONS (1)
  - ACCIDENTAL EXPOSURE [None]
